FAERS Safety Report 4877401-0 (Version None)
Quarter: 2006Q1

REPORT INFORMATION
  Report Type: 
  Country: None (occurrence: None)
  Receive Date: 20060111
  Receipt Date: 20060104
  Transmission Date: 20060701
  Serious: Yes (Death)
  Sender: FDA-Public Use
  Company Number: IT-AVENTIS-200610080EU

PATIENT
  Age: 92 Year
  Sex: Male

DRUGS (6)
  1. CLEXANE [Suspect]
     Indication: DEEP VEIN THROMBOSIS
     Dosage: DOSE: 12000 TO 8000
     Route: 058
     Dates: start: 20051128, end: 20051213
  2. LEVODOPA+BENSERAZIDE [Concomitant]
  3. NIFEDIPINE [Concomitant]
  4. BICALUTAMIDE [Concomitant]
  5. AMOXICILLIN [Concomitant]
     Route: 042
  6. FUROSEMIDE [Concomitant]
     Dates: start: 20051128, end: 20051213

REACTIONS (20)
  - ANAEMIA [None]
  - ASTHENIA [None]
  - CHEST PAIN [None]
  - CONFUSIONAL STATE [None]
  - COUGH [None]
  - DEATH [None]
  - DIARRHOEA [None]
  - DYSPNOEA [None]
  - HAEMATURIA [None]
  - HYPOKINESIA [None]
  - HYPOTENSION [None]
  - LOCALISED OEDEMA [None]
  - OEDEMA [None]
  - OEDEMA GENITAL [None]
  - OEDEMA PERIPHERAL [None]
  - PROSTATE CANCER [None]
  - PRURITUS [None]
  - PYREXIA [None]
  - RECTAL HAEMORRHAGE [None]
  - RESPIRATORY FAILURE [None]
